FAERS Safety Report 5365899-3 (Version None)
Quarter: 2007Q2

REPORT INFORMATION
  Report Type: 
  Country: None (occurrence: None)
  Receive Date: 20070621
  Receipt Date: 20070618
  Transmission Date: 20071010
  Serious: Yes (Other)
  Sender: FDA-Public Use
  Company Number: US-MERCK-0706USA02537

PATIENT
  Age: 55 Year
  Sex: Female

DRUGS (20)
  1. FOSAMAX [Suspect]
     Indication: OSTEOPOROSIS
     Route: 048
     Dates: start: 20050214
  2. PREVACID [Concomitant]
     Route: 065
  3. MIRAPEX [Concomitant]
     Route: 065
  4. PREDNISONE [Concomitant]
     Route: 065
  5. METFORMIN [Concomitant]
     Route: 065
  6. EVOXAC [Concomitant]
     Route: 065
  7. LEXAPRO [Concomitant]
     Route: 065
  8. NEURONTIN [Concomitant]
     Route: 065
  9. AGGRENOX [Concomitant]
     Route: 065
  10. ZANAFLEX [Concomitant]
     Route: 065
  11. OS-CAL + D [Concomitant]
     Route: 065
  12. STARLIX [Concomitant]
     Route: 065
  13. BYETTA [Concomitant]
     Route: 065
  14. SYNTHROID [Concomitant]
     Route: 065
  15. PREMPRO [Concomitant]
     Route: 065
  16. ATROVENT [Concomitant]
     Route: 065
  17. PRAVACHOL [Concomitant]
     Route: 065
  18. TRAZODONE HYDROCHLORIDE [Concomitant]
     Route: 065
  19. WELLBUTRIN XL [Concomitant]
     Route: 065
  20. AMANTADINE HYDROCHLORIDE [Concomitant]
     Route: 065

REACTIONS (1)
  - OSTEONECROSIS [None]
